FAERS Safety Report 11050809 (Version 2)
Quarter: 2015Q2

REPORT INFORMATION
  Report Type: Spontaneous
  Country: TN (occurrence: TN)
  Receive Date: 20150421
  Receipt Date: 20150428
  Transmission Date: 20150821
  Serious: Yes (Other)
  Sender: FDA-Public Use
  Company Number: TN-SUN PHARMACEUTICAL INDUSTRIES LTD-2015RR-95654

PATIENT
  Age: 47 Year
  Sex: Female

DRUGS (1)
  1. SIFLOKS [Suspect]
     Active Substance: CIPROFLOXACIN
     Indication: URINARY TRACT INFECTION
     Dosage: UNK
     Route: 065

REACTIONS (3)
  - Rhabdomyolysis [Recovered/Resolved]
  - Drug reaction with eosinophilia and systemic symptoms [Recovered/Resolved]
  - Renal failure [Recovering/Resolving]
